FAERS Safety Report 8777115 (Version 4)
Quarter: 2016Q4

REPORT INFORMATION
  Report Type: Report from Study
  Country: DE (occurrence: IT)
  Receive Date: 20120911
  Receipt Date: 20161107
  Transmission Date: 20170207
  Serious: Yes (Death, Other)
  Sender: FDA-Public Use
  Company Number: IT-CELGENEUS-083-21880-12090022

PATIENT

DRUGS (7)
  1. REVLIMID [Suspect]
     Active Substance: LENALIDOMIDE
     Route: 048
  2. DEXAMETHASONE. [Concomitant]
     Active Substance: DEXAMETHASONE
     Indication: PLASMA CELL MYELOMA
     Dosage: 40 MILLIGRAM
     Route: 065
  3. BENDAMUSTINE [Concomitant]
     Active Substance: BENDAMUSTINE
     Indication: PLASMA CELL MYELOMA
     Route: 041
  4. REVLIMID [Suspect]
     Active Substance: LENALIDOMIDE
     Indication: PLASMA CELL MYELOMA
     Route: 048
  5. REVLIMID [Suspect]
     Active Substance: LENALIDOMIDE
     Route: 048
  6. BENDAMUSTINE [Concomitant]
     Active Substance: BENDAMUSTINE
     Route: 041
  7. BENDAMUSTINE [Concomitant]
     Active Substance: BENDAMUSTINE
     Route: 041

REACTIONS (29)
  - Renal failure [Fatal]
  - Hyperglycaemia [Unknown]
  - Renal impairment [Unknown]
  - Pyrexia [Unknown]
  - Death [Fatal]
  - Plasma cell myeloma [Fatal]
  - Infection [Fatal]
  - Anaemia [Unknown]
  - Central nervous system haemorrhage [Fatal]
  - Neurotoxicity [Unknown]
  - Fatigue [Unknown]
  - Cough [Unknown]
  - Haematotoxicity [Fatal]
  - Thrombocytopenia [Fatal]
  - Gastrointestinal disorder [Unknown]
  - Anxiety [Unknown]
  - Arrhythmia [Unknown]
  - Febrile neutropenia [Unknown]
  - Pneumonia [Unknown]
  - Dyspnoea [Unknown]
  - Leukopenia [Unknown]
  - Neutropenia [Unknown]
  - Adverse event [Unknown]
  - Rash [Unknown]
  - Myocardial ischaemia [Fatal]
  - Haemorrhage [Unknown]
  - Toxicity to various agents [Unknown]
  - Diarrhoea [Unknown]
  - Influenza [Unknown]
